FAERS Safety Report 23074748 (Version 1)
Quarter: 2023Q4

REPORT INFORMATION
  Report Type: Spontaneous
  Country: US (occurrence: None)
  Receive Date: 20231017
  Receipt Date: 20231017
  Transmission Date: 20240110
  Serious: Yes (Death, Other)
  Sender: FDA-Public Use
  Company Number: 2023A233847

PATIENT

DRUGS (14)
  1. FULVESTRANT [Suspect]
     Active Substance: FULVESTRANT
     Route: 030
     Dates: start: 20181030, end: 20190514
  2. FULVESTRANT [Suspect]
     Active Substance: FULVESTRANT
     Route: 030
     Dates: start: 20181002, end: 20190514
  3. PALBOCICLIB [Suspect]
     Active Substance: PALBOCICLIB
     Route: 048
     Dates: start: 20180918, end: 20181008
  4. PALBOCICLIB [Suspect]
     Active Substance: PALBOCICLIB
     Route: 048
     Dates: start: 20181101, end: 20181122
  5. PALBOCICLIB [Suspect]
     Active Substance: PALBOCICLIB
     Route: 048
     Dates: start: 20181203, end: 20181224
  6. PALBOCICLIB [Suspect]
     Active Substance: PALBOCICLIB
     Route: 048
     Dates: start: 20190101, end: 20190123
  7. PALBOCICLIB [Suspect]
     Active Substance: PALBOCICLIB
     Route: 048
     Dates: start: 20190131, end: 20190221
  8. PALBOCICLIB [Suspect]
     Active Substance: PALBOCICLIB
     Route: 048
     Dates: start: 20190307, end: 20190321
  9. PALBOCICLIB [Suspect]
     Active Substance: PALBOCICLIB
     Route: 048
     Dates: start: 20190328, end: 20190418
  10. PALBOCICLIB [Suspect]
     Active Substance: PALBOCICLIB
     Route: 048
     Dates: start: 20190425, end: 20190514
  11. CAPECITABINE [Suspect]
     Active Substance: CAPECITABINE
     Dates: start: 20190904, end: 20200407
  12. EXEMESTANE [Suspect]
     Active Substance: EXEMESTANE
     Dates: start: 20190516, end: 20190919
  13. EVEROLIMUS [Suspect]
     Active Substance: EVEROLIMUS
     Dates: start: 20190516, end: 20190919
  14. PIQRAY [Suspect]
     Active Substance: ALPELISIB
     Dates: start: 20200506, end: 20200628

REACTIONS (2)
  - Breast cancer [Fatal]
  - Oncologic complication [Fatal]

NARRATIVE: CASE EVENT DATE: 20200717
